FAERS Safety Report 13746476 (Version 1)
Quarter: 2017Q3

REPORT INFORMATION
  Report Type: Spontaneous
  Country: AU (occurrence: AU)
  Receive Date: 20170712
  Receipt Date: 20170712
  Transmission Date: 20171127
  Serious: Yes (Other)
  Sender: FDA-Public Use
  Company Number: AU-APOTEX-2017AP014872

PATIENT

DRUGS (1)
  1. PAROXETINE. [Suspect]
     Active Substance: PAROXETINE
     Indication: PRODUCT USED FOR UNKNOWN INDICATION
     Dosage: UNK
     Route: 065
     Dates: start: 2001, end: 2015

REACTIONS (6)
  - Withdrawal syndrome [Unknown]
  - Coordination abnormal [Unknown]
  - Balance disorder [Unknown]
  - Nervous system disorder [Unknown]
  - Tremor [Unknown]
  - Dyskinesia [Unknown]
